FAERS Safety Report 5138800-5 (Version None)
Quarter: 2006Q4

REPORT INFORMATION
  Report Type: 
  Country: None (occurrence: None)
  Receive Date: 20061030
  Receipt Date: 20061017
  Transmission Date: 20070319
  Serious: Yes (Other)
  Sender: FDA-Public Use
  Company Number: 2006GB01859

PATIENT
  Age: 58 Year
  Sex: Male
  Weight: 65 kg

DRUGS (8)
  1. ATENOLOL [Suspect]
     Indication: DRESSLER'S SYNDROME
     Route: 048
     Dates: start: 20040512, end: 20050701
  2. ATENOLOL [Suspect]
     Indication: MYOCARDIAL INFARCTION
     Route: 048
     Dates: start: 20040512, end: 20050701
  3. ASPIRIN [Concomitant]
     Indication: DRESSLER'S SYNDROME
     Route: 048
     Dates: start: 20040501
  4. ASPIRIN [Concomitant]
     Indication: MYOCARDIAL INFARCTION
     Route: 048
     Dates: start: 20040501
  5. RAMIPRIL [Concomitant]
     Indication: DRESSLER'S SYNDROME
     Route: 048
     Dates: start: 20040501, end: 20040901
  6. RAMIPRIL [Concomitant]
     Indication: MYOCARDIAL INFARCTION
     Route: 048
     Dates: start: 20040501, end: 20040901
  7. SIMVASTATIN [Concomitant]
     Indication: DRESSLER'S SYNDROME
     Route: 048
     Dates: start: 20040501
  8. SIMVASTATIN [Concomitant]
     Indication: MYOCARDIAL INFARCTION
     Route: 048
     Dates: start: 20040501

REACTIONS (7)
  - CONFUSIONAL STATE [None]
  - DIZZINESS [None]
  - DRY EYE [None]
  - DRY MOUTH [None]
  - FATIGUE [None]
  - MUSCLE SPASMS [None]
  - SLEEP DISORDER [None]
